FAERS Safety Report 18787575 (Version 2)
Quarter: 2022Q2

REPORT INFORMATION
  Report Type: Spontaneous
  Country: JP (occurrence: JP)
  Receive Date: 20210126
  Receipt Date: 20220624
  Transmission Date: 20220721
  Serious: Yes (Hospitalization, Other)
  Sender: FDA-Public Use
  Company Number: JP-VIIVHC-JP2020JPN251957AA

PATIENT

DRUGS (1)
  1. ABACAVIR SULFATE\DOLUTEGRAVIR SODIUM\LAMIVUDINE [Suspect]
     Active Substance: ABACAVIR SULFATE\DOLUTEGRAVIR SODIUM\LAMIVUDINE
     Indication: HIV infection
     Dosage: 1 DF, QD
     Route: 048

REACTIONS (2)
  - Myocardial infarction [Unknown]
  - Pericarditis infective [Unknown]
